FAERS Safety Report 7097641-2 (Version None)
Quarter: 2010Q4

REPORT INFORMATION
  Report Type: 
  Country: None (occurrence: None)
  Receive Date: 20101112
  Receipt Date: 20101105
  Transmission Date: 20110411
  Serious: Yes (Death)
  Sender: FDA-Public Use
  Company Number: GB-BIOGENIDEC-2010BI026337

PATIENT
  Age: 59 Year
  Sex: Male

DRUGS (3)
  1. AVONEX [Suspect]
     Indication: RELAPSING-REMITTING MULTIPLE SCLEROSIS
     Dates: start: 20040707, end: 20100521
  2. CO-CODAMOL [Concomitant]
  3. TRAMADOL HCL [Concomitant]

REACTIONS (1)
  - ACUTE MYELOID LEUKAEMIA [None]
